FAERS Safety Report 7414634-3 (Version None)
Quarter: 2011Q2

REPORT INFORMATION
  Report Type: 
  Country: None (occurrence: None)
  Receive Date: 20110414
  Receipt Date: 20110405
  Transmission Date: 20111010
  Serious: Yes (Hospitalization)
  Sender: FDA-Public Use
  Company Number: US-TYCO HEALTHCARE/MALLINCKRODT-T201100698

PATIENT
  Age: 50 Year
  Sex: Female

DRUGS (1)
  1. OPTIRAY 350 [Suspect]
     Indication: CATHETERISATION CARDIAC
     Dosage: 34 ML, SINGLE
     Dates: start: 20110405, end: 20110405

REACTIONS (5)
  - HAEMODYNAMIC INSTABILITY [None]
  - DRUG ADMINISTRATION ERROR [None]
  - PAIN [None]
  - AIR EMBOLISM [None]
  - ELECTROCARDIOGRAM ST SEGMENT ELEVATION [None]
